FAERS Safety Report 8428651-8 (Version None)
Quarter: 2012Q2

REPORT INFORMATION
  Report Type: 
  Country: None (occurrence: None)
  Receive Date: 20120606
  Receipt Date: 20120522
  Transmission Date: 20120825
  Serious: Yes (Death)
  Sender: FDA-Public Use
  Company Number: 1298837

PATIENT
  Age: 51 Year
  Sex: Female
  Weight: 71.6683 kg

DRUGS (3)
  1. MITOXANTRONE HYDROCHLORIDE [Suspect]
     Indication: BREAST CANCER METASTATIC
     Dosage: 20 MG MILLIGRAM(S), INTRAVENOUS (NOT OTHERWISE SPECIFIED)
     Route: 042
     Dates: start: 20111101, end: 20111101
  2. CAPECITABINE [Concomitant]
  3. HERCEPTIN [Concomitant]

REACTIONS (1)
  - NEUTROPENIC SEPSIS [None]
